FAERS Safety Report 15391832 (Version 2)
Quarter: 2018Q4

REPORT INFORMATION
  Report Type: Spontaneous
  Country: JP (occurrence: JP)
  Receive Date: 20180917
  Receipt Date: 20181026
  Transmission Date: 20190204
  Serious: Yes (Hospitalization)
  Sender: FDA-Public Use
  Company Number: JP-PFIZER INC-2018368498

PATIENT
  Age: 57 Year
  Sex: Male

DRUGS (2)
  1. DOGMATYL [Suspect]
     Active Substance: SULPIRIDE
     Indication: DEPRESSION
     Dosage: 150 MG, 3X/DAY
     Route: 048
     Dates: start: 20180727, end: 20180803
  2. EFFEXOR [Suspect]
     Active Substance: VENLAFAXINE HYDROCHLORIDE
     Indication: DEPRESSION
     Dosage: 75 MG, 1X/DAY
     Route: 048
     Dates: start: 20180803, end: 20180805

REACTIONS (2)
  - Pain [Recovered/Resolved]
  - Irritability [Recovered/Resolved]

NARRATIVE: CASE EVENT DATE: 20180804
